FAERS Safety Report 20460857 (Version 1)
Quarter: 2022Q1

REPORT INFORMATION
  Report Type: Spontaneous
  Country: US (occurrence: None)
  Receive Date: 20220210
  Receipt Date: 20220210
  Transmission Date: 20220424
  Serious: Yes (Hospitalization, Disabling)
  Sender: FDA-Public Use
  Company Number: None

PATIENT
  Age: 59 Year
  Sex: Female
  Weight: 50.3 kg

DRUGS (7)
  1. BARICITINIB [Suspect]
     Active Substance: BARICITINIB
     Indication: COVID-19
     Dosage: FREQUENCY : DAILY;?
     Route: 048
     Dates: start: 20220127, end: 20220209
  2. DEXAMETHASONE [Concomitant]
     Active Substance: DEXAMETHASONE
     Dates: start: 20220124, end: 20220208
  3. FAMOTIDINE [Concomitant]
     Active Substance: FAMOTIDINE
     Dates: start: 20220124, end: 20220209
  4. HEPARIN [Concomitant]
     Active Substance: HEPARIN SODIUM
     Dates: start: 20220124
  5. HYDROXYCHLOROQUINE [Concomitant]
     Active Substance: HYDROXYCHLOROQUINE
     Dates: start: 20220124, end: 20220209
  6. LEVOTHYROXINE [Concomitant]
     Active Substance: LEVOTHYROXINE
     Dates: start: 20220124, end: 20220209
  7. REMDESIVIR [Concomitant]
     Active Substance: REMDESIVIR
     Dates: start: 20220124, end: 20220124

REACTIONS (8)
  - Hypotension [None]
  - Tachypnoea [None]
  - Tachycardia [None]
  - Pneumoperitoneum [None]
  - Intestinal perforation [None]
  - Gastrointestinal wall thickening [None]
  - Gastrointestinal inflammation [None]
  - Peritonitis [None]

NARRATIVE: CASE EVENT DATE: 20220209
